FAERS Safety Report 5849832-3 (Version None)
Quarter: 2008Q3

REPORT INFORMATION
  Report Type: 
  Country: None (occurrence: None)
  Receive Date: 20080818
  Receipt Date: 20080818
  Transmission Date: 20090109
  Serious: Yes (Death)
  Sender: FDA-Public Use
  Company Number: None

PATIENT
  Age: 67 Year
  Sex: Male
  Weight: 88.4514 kg

DRUGS (2)
  1. DIGITEK MYLAN PHARMACEUTICALS [Suspect]
     Indication: ATRIAL FIBRILLATION
     Dosage: 0.25MG ONCE A DAY PO, 3 MONTHS
     Route: 048
  2. DIGITEK MYLAN PHARMACEUTICALS [Suspect]
     Indication: CARDIAC FAILURE CONGESTIVE
     Dosage: 0.25MG ONCE A DAY PO, 3 MONTHS
     Route: 048

REACTIONS (1)
  - PHARMACEUTICAL PRODUCT COMPLAINT [None]
